FAERS Safety Report 8990354 (Version 4)
Quarter: 2013Q3

REPORT INFORMATION
  Report Type: Spontaneous
  Country: US (occurrence: US)
  Receive Date: 20121228
  Receipt Date: 20130705
  Transmission Date: 20140515
  Serious: Yes (Hospitalization)
  Sender: FDA-Public Use
  Company Number: US-B.I. PHARMACEUTICALS,INC./RIDGEFIELD-2012-BI-04342BP

PATIENT
  Sex: Male
  Weight: 80.74 kg

DRUGS (14)
  1. PRADAXA [Suspect]
     Indication: MITRAL VALVE REPAIR
     Dates: start: 20111025, end: 20111210
  2. IRON [Concomitant]
  3. PLAVIX [Concomitant]
  4. FOLIC ACID [Concomitant]
  5. ACTOS [Concomitant]
  6. NEXIUM [Concomitant]
  7. VITAMIN D [Concomitant]
  8. COLCHICINE [Concomitant]
  9. METOPROLOL [Concomitant]
  10. FUROSEMIDE [Concomitant]
  11. ASPIRIN [Concomitant]
  12. ALLOPURINOL [Concomitant]
  13. XANAX [Concomitant]
  14. SIMVASTATIN [Concomitant]

REACTIONS (7)
  - Acute respiratory failure [Unknown]
  - Renal failure [Unknown]
  - Haemolytic anaemia [Unknown]
  - Haemorrhage [Unknown]
  - Haemorrhagic anaemia [Unknown]
  - Gastrointestinal haemorrhage [Unknown]
  - Rectal haemorrhage [Unknown]
